FAERS Safety Report 8250415-9 (Version None)
Quarter: 2012Q2

REPORT INFORMATION
  Report Type: 
  Country: None (occurrence: None)
  Receive Date: 20120402
  Receipt Date: 20120328
  Transmission Date: 20120825
  Serious: Yes (Hospitalization)
  Sender: FDA-Public Use
  Company Number: US-AMGEN-USACT2012002638

PATIENT
  Age: 29 Year
  Sex: Female
  Weight: 70 kg

DRUGS (41)
  1. BLINDED PLACEBO [Suspect]
     Route: 058
     Dates: start: 20110815, end: 20111107
  2. NEULASTA [Suspect]
     Dosage: 6 MG, UNK
     Route: 058
     Dates: start: 20110726, end: 20111121
  3. FOLIC ACID [Concomitant]
     Dosage: 1 MG, UNK
     Route: 048
     Dates: start: 20110809
  4. EFFEXOR XR [Concomitant]
     Dosage: 37.5 MG, UNK
     Route: 048
     Dates: start: 20111118, end: 20120103
  5. ZOFRAN [Concomitant]
     Dosage: 4 MG, PRN
     Route: 048
     Dates: start: 20110809, end: 20111125
  6. FOSAPREPITANT DIMEGLUMINE [Concomitant]
     Dosage: 150 MG, UNK
     Route: 042
     Dates: start: 20110725, end: 20110926
  7. DEXAMETHASONE [Concomitant]
     Dosage: UNK MG, UNK
     Route: 042
     Dates: start: 20110725, end: 20120103
  8. LORTAB [Concomitant]
     Dosage: 7.5 MG, UNK
     Route: 048
     Dates: start: 20110809
  9. MIRALAX [Concomitant]
     Dosage: UNK UNK, PRN
     Route: 048
  10. CIPROFLOXACIN HCL [Concomitant]
     Dosage: 500 MG, UNK
     Route: 048
     Dates: start: 20111106, end: 20111202
  11. VITAMIN D [Concomitant]
     Dosage: 400 IU, UNK
     Route: 048
     Dates: start: 20110815
  12. XANAX [Concomitant]
     Dosage: 1 MG, QD
     Route: 048
     Dates: start: 20110623
  13. IBUPROFEN [Concomitant]
     Dosage: 600 MG, UNK
     Route: 048
     Dates: start: 20110906, end: 20111010
  14. PALONOSETRON [Concomitant]
     Dosage: 0.25 MG, UNK
     Route: 042
     Dates: start: 20110725, end: 20120103
  15. LORAZEPAM [Concomitant]
     Dosage: 0.5 MG, UNK
     Route: 042
     Dates: start: 20110725, end: 20110917
  16. FILGRASTIM [Concomitant]
     Dosage: 600 MUG, UNK
     Route: 058
     Dates: start: 20111107, end: 20111107
  17. MULTI-VITAMINS [Concomitant]
     Dosage: UNK
     Route: 048
  18. COMPAZINE [Concomitant]
     Dosage: 10 MG, PRN
     Route: 048
     Dates: start: 20110722
  19. FLUZONE [Concomitant]
     Dosage: 0.5 MG, UNK
     Route: 030
     Dates: start: 20110927, end: 20110927
  20. BLINDED DENOSUMAB [Suspect]
     Indication: BREAST CANCER
     Dates: start: 20110815
  21. BLINDED DENOSUMAB [Suspect]
     Route: 058
     Dates: start: 20110815, end: 20111107
  22. TORADOL [Concomitant]
     Dosage: 30 MG, UNK
     Route: 042
     Dates: start: 20111125
  23. CHERATUSSIN AC [Concomitant]
     Dosage: UNK
     Route: 048
     Dates: start: 20111107, end: 20111205
  24. VITAMIN B COMPLEX CAP [Concomitant]
     Dosage: UNK
     Route: 048
  25. CELEXA [Concomitant]
     Dosage: 40 MG, UNK
     Route: 048
     Dates: start: 20110623, end: 20111118
  26. NAPROXEN (ALEVE) [Concomitant]
     Dosage: 1 MG, UNK
     Route: 048
     Dates: start: 20110707
  27. KEFLEX [Concomitant]
     Dosage: 500 MG, UNK
     Route: 048
     Dates: start: 20111026, end: 20111101
  28. DILAUDID [Concomitant]
     Dosage: 2 MG, UNK
     Route: 042
     Dates: start: 20111125
  29. LEVAQUIN [Concomitant]
     Dosage: 500 MG, UNK
     Route: 042
     Dates: start: 20111017, end: 20111017
  30. EMLA [Concomitant]
     Dosage: 2.5 UNK, UNK
     Route: 062
     Dates: start: 20110725
  31. BLINDED PLACEBO [Suspect]
     Indication: BREAST CANCER
     Dates: start: 20110815
  32. TAXOTERE [Concomitant]
     Dosage: UNK
     Dates: start: 20110725
  33. MORPHINE SULFATE [Concomitant]
     Dosage: 4 MG, UNK
     Route: 042
     Dates: start: 20110909, end: 20111125
  34. AMBIEN [Concomitant]
     Dosage: 10 MG, PRN
     Route: 048
     Dates: start: 20110623
  35. ZANTAC [Concomitant]
     Dosage: 150 MG, UNK
     Route: 048
     Dates: start: 20110812, end: 20110912
  36. PHENERGAN HCL [Concomitant]
     Dosage: 25 MG, UNK
     Route: 054
     Dates: start: 20111108
  37. SENOKOT [Concomitant]
     Dosage: UNK UNK, QD
     Route: 048
  38. SODIUM CHLORIDE [Concomitant]
     Dosage: 1000 ML, UNK
     Route: 042
     Dates: start: 20110912, end: 20111125
  39. DULCOLAX [Concomitant]
     Route: 048
     Dates: start: 20110615
  40. COUMADIN [Concomitant]
     Dosage: 1 MG, QD
     Route: 048
     Dates: start: 20110822
  41. CALCIUM CARBONATE [Concomitant]
     Dosage: 500 MG, UNK
     Route: 048
     Dates: start: 20110815

REACTIONS (2)
  - FLANK PAIN [None]
  - URINARY RETENTION [None]
